FAERS Safety Report 8963315 (Version 1)
Quarter: 2012Q4

REPORT INFORMATION
  Report Type: 
  Country: US (occurrence: US)
  Receive Date: 20121213
  Receipt Date: 20121213
  Transmission Date: 20130627
  Serious: No
  Sender: FDA-Public Use
  Company Number: US-PFIZER INC-2012315085

PATIENT
  Sex: Female

DRUGS (3)
  1. LYRICA [Suspect]
     Indication: CYSTITIS INTERSTITIAL
     Dosage: UNK
  2. LYRICA [Suspect]
     Indication: FIBROMYALGIA
  3. LUNESTA [Suspect]
     Indication: SLEEP DISORDER
     Dosage: UNK

REACTIONS (4)
  - Somnolence [Unknown]
  - Dry eye [Unknown]
  - Arthropathy [Unknown]
  - Off label use [Unknown]
